FAERS Safety Report 12390833 (Version 1)
Quarter: 2016Q2

REPORT INFORMATION
  Report Type: Spontaneous
  Country: JP (occurrence: JP)
  Receive Date: 20160520
  Receipt Date: 20160520
  Transmission Date: 20160815
  Serious: Yes (Hospitalization, Other)
  Sender: FDA-Public Use
  Company Number: JP-GLAXOSMITHKLINE-JP2016JPN069273

PATIENT
  Age: 26 Year
  Sex: Male

DRUGS (9)
  1. GOODMIN (JAPAN) [Concomitant]
     Dosage: UNK UNK, 1D
  2. DESYREL [Concomitant]
     Active Substance: TRAZODONE HYDROCHLORIDE
     Dosage: UNK UNK, 1D
  3. ZYPREXA [Concomitant]
     Active Substance: OLANZAPINE
     Dosage: UNK UNK, 1D
  4. MAGNESIUM OXIDE. [Concomitant]
     Active Substance: MAGNESIUM OXIDE
     Dosage: UNK
  5. LAMICTAL [Suspect]
     Active Substance: LAMOTRIGINE
     Dosage: 175 MG, SINGLE
     Route: 048
     Dates: start: 20160329
  6. LAMICTAL [Suspect]
     Active Substance: LAMOTRIGINE
     Indication: BORDERLINE PERSONALITY DISORDER
     Dosage: UNK UNK, 1D
     Route: 048
     Dates: start: 20160325
  7. LEVOTOMIN [Concomitant]
     Active Substance: LEVOMEPROMAZINE
     Dosage: UNK, PRN
  8. LAMICTAL [Suspect]
     Active Substance: LAMOTRIGINE
     Dosage: 100 MG, 1D
     Route: 048
     Dates: start: 201605
  9. BENZALIN (JAPAN) [Concomitant]
     Dosage: UNK UNK, 1D

REACTIONS (12)
  - Suicidal ideation [Unknown]
  - Incoherent [Unknown]
  - Aphasia [Unknown]
  - Condition aggravated [Unknown]
  - Rash pustular [Unknown]
  - Loss of consciousness [Unknown]
  - Cognitive disorder [Unknown]
  - Eczema [Unknown]
  - Dizziness [Unknown]
  - Overdose [Unknown]
  - Vision blurred [Unknown]
  - Off label use [Unknown]

NARRATIVE: CASE EVENT DATE: 2016
